FAERS Safety Report 19670439 (Version 1)
Quarter: 2021Q3

REPORT INFORMATION
  Report Type: Spontaneous
  Country: ES (occurrence: ES)
  Receive Date: 20210806
  Receipt Date: 20210806
  Transmission Date: 20211014
  Serious: Yes (Death, Other)
  Sender: FDA-Public Use
  Company Number: ES-SLATE RUN PHARMACEUTICALS-21ES000607

PATIENT

DRUGS (21)
  1. ARTESUNATE [Suspect]
     Active Substance: ARTESUNATE
     Indication: CYTOMEGALOVIRUS COLITIS
  2. VALGANCICLOVIR. [Suspect]
     Active Substance: VALGANCICLOVIR
     Indication: CYTOMEGALOVIRUS CHORIORETINITIS
  3. FOSCARNET [Suspect]
     Active Substance: FOSCARNET
     Indication: PNEUMONIA CYTOMEGALOVIRAL
     Dosage: UNK
  4. CIDOFOVIR. [Suspect]
     Active Substance: CIDOFOVIR
     Indication: PNEUMONIA CYTOMEGALOVIRAL
     Dosage: UNK
  5. CIDOFOVIR. [Suspect]
     Active Substance: CIDOFOVIR
     Indication: CYTOMEGALOVIRUS CHORIORETINITIS
  6. IMMUNOGLOBULIN I.V [Suspect]
     Active Substance: HUMAN IMMUNOGLOBULIN G
     Indication: PNEUMONIA CYTOMEGALOVIRAL
     Dosage: UNK
  7. GANCICLOVIR USP [Suspect]
     Active Substance: GANCICLOVIR
     Indication: PNEUMONIA CYTOMEGALOVIRAL
     Dosage: UNK
  8. GANCICLOVIR USP [Suspect]
     Active Substance: GANCICLOVIR
     Indication: CYTOMEGALOVIRUS COLITIS
  9. VALGANCICLOVIR. [Suspect]
     Active Substance: VALGANCICLOVIR
     Indication: PNEUMONIA CYTOMEGALOVIRAL
     Dosage: UNK
  10. FOSCARNET [Suspect]
     Active Substance: FOSCARNET
     Indication: CYTOMEGALOVIRUS CHORIORETINITIS
  11. CIDOFOVIR. [Suspect]
     Active Substance: CIDOFOVIR
     Indication: CYTOMEGALOVIRUS COLITIS
  12. ARTESUNATE [Suspect]
     Active Substance: ARTESUNATE
     Indication: CYTOMEGALOVIRUS CHORIORETINITIS
  13. IMMUNOGLOBULIN I.V [Suspect]
     Active Substance: HUMAN IMMUNOGLOBULIN G
     Indication: CYTOMEGALOVIRUS CHORIORETINITIS
  14. FOSCARNET [Suspect]
     Active Substance: FOSCARNET
     Indication: CYTOMEGALOVIRUS COLITIS
  15. RITUXIMAB. [Suspect]
     Active Substance: RITUXIMAB
     Indication: CYTOMEGALOVIRUS CHORIORETINITIS
  16. VALGANCICLOVIR. [Suspect]
     Active Substance: VALGANCICLOVIR
     Indication: CYTOMEGALOVIRUS COLITIS
  17. IMMUNOGLOBULIN I.V [Suspect]
     Active Substance: HUMAN IMMUNOGLOBULIN G
     Indication: CYTOMEGALOVIRUS COLITIS
  18. GANCICLOVIR USP [Suspect]
     Active Substance: GANCICLOVIR
     Indication: CYTOMEGALOVIRUS CHORIORETINITIS
  19. ARTESUNATE [Suspect]
     Active Substance: ARTESUNATE
     Indication: PNEUMONIA CYTOMEGALOVIRAL
     Dosage: UNK
  20. RITUXIMAB. [Suspect]
     Active Substance: RITUXIMAB
     Indication: PNEUMONIA CYTOMEGALOVIRAL
     Dosage: UNK
  21. RITUXIMAB. [Suspect]
     Active Substance: RITUXIMAB
     Indication: CYTOMEGALOVIRUS COLITIS

REACTIONS (6)
  - Nephropathy toxic [Unknown]
  - Drug ineffective for unapproved indication [Unknown]
  - Myelosuppression [Unknown]
  - Organ failure [Unknown]
  - Cytomegalovirus infection [Fatal]
  - Off label use [Unknown]
